FAERS Safety Report 4583598-2 (Version None)
Quarter: 2005Q1

REPORT INFORMATION
  Report Type: 
  Country: None (occurrence: None)
  Receive Date: 20050125
  Receipt Date: 20041011
  Transmission Date: 20050727
  Serious: No
  Sender: FDA-Public Use
  Company Number: USA041080711

PATIENT
  Age: 85 Year
  Sex: Female
  Weight: 48 kg

DRUGS (11)
  1. FORTEO [Suspect]
     Indication: OSTEOPOROSIS
     Dosage: 20 UG/1 DAY
     Dates: start: 20031201
  2. COUMADIN [Concomitant]
  3. ENTERIC ASPIRIN (ACETYLSALICYLIC ACID) [Concomitant]
  4. NEXIUM [Concomitant]
  5. THEOPHYLLINE [Concomitant]
  6. PREDNISONE [Concomitant]
  7. LANOXIN (DIGOXIN STREULI) [Concomitant]
  8. ACCUPRIL [Concomitant]
  9. HUMIBID DM [Concomitant]
  10. OCUVITE LUTEIN [Concomitant]
  11. SINGULAIR (MONTELUKAST) [Concomitant]

REACTIONS (3)
  - FALL [None]
  - OEDEMA PERIPHERAL [None]
  - PAIN IN EXTREMITY [None]
